FAERS Safety Report 7115322-3 (Version None)
Quarter: 2010Q4

REPORT INFORMATION
  Report Type: 
  Country: None (occurrence: None)
  Receive Date: 20101122
  Receipt Date: 20101111
  Transmission Date: 20110411
  Serious: Yes (Other)
  Sender: FDA-Public Use
  Company Number: US-TYCO HEALTHCARE/MALLINCKRODT-T201002262

PATIENT
  Sex: Male

DRUGS (8)
  1. EXALGO [Suspect]
     Indication: BACK PAIN
     Dosage: 16 MG, 12 TABLETS PER DAY
     Dates: start: 20101001
  2. OXYCODONE HCL [Concomitant]
     Dosage: EIGHT 30 MG TABLETS, THREE TIMES A DAY
     Dates: end: 20101001
  3. PREDNISONE [Concomitant]
     Dosage: 50 MG, QD
  4. SINGULAIR [Concomitant]
     Dosage: UNK
  5. NEXIUM [Concomitant]
     Dosage: UNK
  6. ATIVAN [Concomitant]
     Dosage: UNK
  7. LYRICA [Concomitant]
     Dosage: 75 MG, BID
  8. TRAZODONE HCL [Concomitant]
     Dosage: UNK

REACTIONS (2)
  - OEDEMA [None]
  - OVERDOSE [None]
